FAERS Safety Report 13129647 (Version 1)
Quarter: 2017Q1

REPORT INFORMATION
  Report Type: Spontaneous
  Country: DE (occurrence: DE)
  Receive Date: 20170119
  Receipt Date: 20170119
  Transmission Date: 20170428
  Serious: Yes (Hospitalization)
  Sender: FDA-Public Use
  Company Number: DE-EMD SERONO-8137686

PATIENT
  Sex: Female

DRUGS (1)
  1. SAIZEN [Suspect]
     Active Substance: SOMATROPIN
     Indication: PRODUCT USED FOR UNKNOWN INDICATION
     Dosage: 5.83 MG / ML INJECTION SOLUTION (EXACT DOSAGE UNSPECIFIED)
     Route: 058

REACTIONS (1)
  - Limb discomfort [Unknown]
